FAERS Safety Report 7792012-5 (Version None)
Quarter: 2011Q3

REPORT INFORMATION
  Report Type: 
  Country: None (occurrence: None)
  Receive Date: 20110930
  Receipt Date: 20110930
  Transmission Date: 20111222
  Serious: Yes (Hospitalization)
  Sender: FDA-Public Use
  Company Number: None

PATIENT
  Age: 79 Year
  Sex: Male
  Weight: 109.9 kg

DRUGS (1)
  1. AMIODARONE HCL [Suspect]
     Indication: ATRIAL FIBRILLATION
     Dosage: 1 TAB BID PO
     Route: 048
     Dates: start: 20110322, end: 20110401

REACTIONS (2)
  - CARDIAC FAILURE CONGESTIVE [None]
  - ACUTE RESPIRATORY DISTRESS SYNDROME [None]
